FAERS Safety Report 9335415 (Version 3)
Quarter: 2013Q3

REPORT INFORMATION
  Report Type: Spontaneous
  Country: US (occurrence: US)
  Receive Date: 20130605
  Receipt Date: 20130807
  Transmission Date: 20140515
  Serious: Yes (Other)
  Sender: FDA-Public Use
  Company Number: US-PFIZER INC-2013170200

PATIENT
  Age: 53 Year
  Sex: Female
  Weight: 79 kg

DRUGS (7)
  1. LYRICA [Suspect]
     Indication: NEUROPATHY PERIPHERAL
     Dosage: 150 MG, 3X/DAY
     Route: 048
  2. LYRICA [Suspect]
     Indication: PAIN
  3. DICLOFENAC [Concomitant]
     Dosage: UNK
  4. MORPHINE SULFATE [Concomitant]
     Dosage: 60 MG, 3X/DAY
  5. BACLOFEN [Concomitant]
     Dosage: 20 MG, 4X/DAY
  6. SYNTHROID [Concomitant]
     Dosage: UNK QD
  7. NORTRIPTYLINE [Concomitant]
     Dosage: 75 MG, 1X/DAY

REACTIONS (4)
  - Osteomyelitis [Unknown]
  - Ulcer [Unknown]
  - Cellulitis [Unknown]
  - Wound [Not Recovered/Not Resolved]
